FAERS Safety Report 8401339-5 (Version None)
Quarter: 2012Q2

REPORT INFORMATION
  Report Type: 
  Country: None (occurrence: None)
  Receive Date: 20120601
  Receipt Date: 20120522
  Transmission Date: 20120825
  Serious: Yes (Other)
  Sender: FDA-Public Use
  Company Number: JP-VERTEX PHARMACEUTICALS INC.-AE-2012-007791

PATIENT
  Age: 62 Year
  Sex: Female

DRUGS (6)
  1. MOTILIUM [Concomitant]
     Route: 048
     Dates: start: 20120508
  2. RIBAVIRIN [Concomitant]
     Route: 048
     Dates: start: 20120508
  3. PEG-INTRON [Concomitant]
     Indication: HEPATITIS C
     Route: 051
     Dates: start: 20120508
  4. ZETIA [Concomitant]
     Route: 048
  5. TELAVIC (TELAPREVIR) [Suspect]
     Indication: HEPATITIS C
     Route: 048
     Dates: start: 20120508, end: 20120510
  6. TELAVIC (TELAPREVIR) [Suspect]
     Route: 048
     Dates: start: 20120511

REACTIONS (1)
  - WHITE BLOOD CELL COUNT DECREASED [None]
